FAERS Safety Report 5762629-8 (Version None)
Quarter: 2008Q2

REPORT INFORMATION
  Report Type: 
  Country: None (occurrence: None)
  Receive Date: 20080609
  Receipt Date: 20080521
  Transmission Date: 20081010
  Serious: No
  Sender: FDA-Public Use
  Company Number: US-BAYER-200824118NA

PATIENT

DRUGS (1)
  1. MAGNEVIST [Suspect]

REACTIONS (2)
  - HEADACHE [None]
  - VOMITING [None]
